FAERS Safety Report 13874187 (Version 3)
Quarter: 2017Q4

REPORT INFORMATION
  Report Type: Spontaneous
  Country: US (occurrence: US)
  Receive Date: 20170816
  Receipt Date: 20171101
  Transmission Date: 20180320
  Serious: Yes (Disabling, Other)
  Sender: FDA-Public Use
  Company Number: US-BAUSCH-BL-2017-024077

PATIENT
  Age: 52 Year
  Sex: Male

DRUGS (3)
  1. BESIVANCE [Suspect]
     Active Substance: BESIFLOXACIN
     Route: 047
     Dates: start: 2017
  2. BESIVANCE [Suspect]
     Active Substance: BESIFLOXACIN
     Indication: POSTOPERATIVE CARE
     Dosage: EVERY ONE HOUR (Q 1HR) ON POST-OPERATIVE DAY
     Route: 047
     Dates: start: 2017
  3. BESIVANCE [Suspect]
     Active Substance: BESIFLOXACIN
     Indication: PREOPERATIVE CARE
     Dosage: 3 DAYS PRE-OPERATIVE SURGERY
     Route: 047
     Dates: start: 201707

REACTIONS (2)
  - Endophthalmitis [Recovering/Resolving]
  - Off label use [Unknown]

NARRATIVE: CASE EVENT DATE: 2017
